FAERS Safety Report 16424192 (Version 1)
Quarter: 2019Q2

REPORT INFORMATION
  Report Type: Spontaneous
  Country: US (occurrence: US)
  Receive Date: 20190613
  Receipt Date: 20190613
  Transmission Date: 20190711
  Serious: No
  Sender: FDA-Public Use
  Company Number: US-TEVA-2019-US-1053488

PATIENT
  Sex: Male
  Weight: 75 kg

DRUGS (6)
  1. PROAIR HFA [Suspect]
     Active Substance: ALBUTEROL SULFATE
     Indication: CHRONIC OBSTRUCTIVE PULMONARY DISEASE
     Dates: start: 2019
  2. LYRICA [Concomitant]
     Active Substance: PREGABALIN
  3. LISINOPRIL. [Concomitant]
     Active Substance: LISINOPRIL
  4. XANAX [Concomitant]
     Active Substance: ALPRAZOLAM
  5. TYLENOL [Concomitant]
     Active Substance: ACETAMINOPHEN
  6. AMITRIPTYLINE [Concomitant]
     Active Substance: AMITRIPTYLINE

REACTIONS (2)
  - Alcohol test positive [Unknown]
  - Nervousness [Unknown]
